FAERS Safety Report 5252873-0 (Version None)
Quarter: 2007Q1

REPORT INFORMATION
  Report Type: 
  Country: None (occurrence: None)
  Receive Date: 20070301
  Receipt Date: 20070215
  Transmission Date: 20070707
  Serious: Yes (Hospitalization)
  Sender: FDA-Public Use
  Company Number: NL-ELI_LILLY_AND_COMPANY-NL200702003614

PATIENT
  Age: 13 Year
  Sex: Female

DRUGS (5)
  1. ZYPREXA [Suspect]
     Indication: EMOTIONAL DISORDER
     Dosage: 2.5 MG, UNK
  2. ZYPREXA [Suspect]
     Dosage: 2.5 MG, 2/D
  3. ZYPREXA [Suspect]
     Dosage: 2.5 MG, DAILY (1/D)
  4. ZYPREXA [Suspect]
     Dosage: 5 MG, UNK
     Dates: start: 20061201
  5. PREDNISONE [Concomitant]
     Indication: PARALYSIS

REACTIONS (9)
  - ABNORMAL BEHAVIOUR [None]
  - FALL [None]
  - GAIT DISTURBANCE [None]
  - MEDICATION ERROR [None]
  - MULTIPLE SCLEROSIS [None]
  - PARALYSIS [None]
  - SLEEP ATTACKS [None]
  - SPEECH DISORDER [None]
  - URINARY INCONTINENCE [None]
